FAERS Safety Report 5284271-8 (Version None)
Quarter: 2007Q2

REPORT INFORMATION
  Report Type: 
  Country: None (occurrence: None)
  Receive Date: 20070403
  Receipt Date: 20070321
  Transmission Date: 20071010
  Serious: Yes (Other)
  Sender: FDA-Public Use
  Company Number: PHNU2005DE02926

PATIENT
  Sex: Female

DRUGS (2)
  1. CLOZAPINE [Suspect]
     Indication: SCHIZOPHRENIA
     Dosage: UP TO 100 MG, QD
     Route: 048
  2. VENLAFAXINE HCL [Concomitant]
     Dosage: UNK, UNK
     Route: 048
     Dates: start: 20040101

REACTIONS (2)
  - BREAST CANCER [None]
  - TUMOUR MARKER INCREASED [None]
